FAERS Safety Report 11800941 (Version 1)
Quarter: 2015Q4

REPORT INFORMATION
  Report Type: Spontaneous
  Country: DE (occurrence: DE)
  Receive Date: 20151204
  Receipt Date: 20151204
  Transmission Date: 20160305
  Serious: Yes (Congenital Anomaly, Other)
  Sender: FDA-Public Use
  Company Number: DE-DRREDDYS-GER/GER/15/0054357

PATIENT
  Sex: Male
  Weight: .57 kg

DRUGS (5)
  1. PRESINOL [Concomitant]
     Active Substance: METHYLDOPA
     Indication: PRODUCT USED FOR UNKNOWN INDICATION
     Route: 064
     Dates: start: 20141217, end: 20141222
  2. NASENSPRAY - RATIOPHARM (KINDER) [Concomitant]
     Indication: PRODUCT USED FOR UNKNOWN INDICATION
     Route: 064
  3. METOPROLOL [Suspect]
     Active Substance: METOPROLOL
     Indication: PRODUCT USED FOR UNKNOWN INDICATION
     Route: 064
     Dates: start: 20141029, end: 20150401
  4. FOLIO FORTE [Concomitant]
     Active Substance: FOLIC ACID\VITAMINS
     Indication: PRODUCT USED FOR UNKNOWN INDICATION
     Route: 064
     Dates: start: 20141029, end: 20150401
  5. MIFEGYNE [Concomitant]
     Active Substance: MIFEPRISTONE
     Indication: PRODUCT USED FOR UNKNOWN INDICATION
     Route: 064
     Dates: start: 20150331, end: 20150331

REACTIONS (4)
  - Foetal exposure during pregnancy [Not Recovered/Not Resolved]
  - Arnold-Chiari malformation [Not Recovered/Not Resolved]
  - Meningomyelocele [Not Recovered/Not Resolved]
  - Spina bifida [Not Recovered/Not Resolved]
